FAERS Safety Report 7354919-2 (Version None)
Quarter: 2011Q1

REPORT INFORMATION
  Report Type: 
  Country: None (occurrence: None)
  Receive Date: 20110316
  Receipt Date: 20110216
  Transmission Date: 20110831
  Serious: No
  Sender: FDA-Public Use
  Company Number: US-B.I. PHARMACEUTICALS,INC./RIDGEFIELD-2011-BP-06052BP

PATIENT
  Sex: Female

DRUGS (5)
  1. IMODIUM [Concomitant]
     Indication: GASTRIC DISORDER
     Route: 048
  2. PLAVIX [Concomitant]
     Indication: CARDIAC DISORDER
     Route: 048
  3. ZANTAC 150 [Suspect]
     Indication: GASTRIC DISORDER
     Dosage: 150 MG
     Route: 048
     Dates: start: 20110215, end: 20110215
  4. ASPIRIN [Concomitant]
     Indication: CARDIAC DISORDER
     Dosage: 81 MG
     Route: 048
     Dates: start: 20031210
  5. METOPROLOL SUCCINATE [Concomitant]
     Indication: HYPERTENSION
     Route: 048

REACTIONS (10)
  - DIZZINESS [None]
  - MUSCULOSKELETAL PAIN [None]
  - RESTLESSNESS [None]
  - NERVOUSNESS [None]
  - BLOOD PRESSURE INCREASED [None]
  - MUSCULAR WEAKNESS [None]
  - PARAESTHESIA [None]
  - URINARY TRACT DISORDER [None]
  - TREMOR [None]
  - BOWEL MOVEMENT IRREGULARITY [None]
